FAERS Safety Report 12321549 (Version 1)
Quarter: 2016Q2

REPORT INFORMATION
  Report Type: Spontaneous
  Country: US (occurrence: None)
  Receive Date: 20160429
  Receipt Date: 20160429
  Transmission Date: 20160815
  Serious: No
  Sender: FDA-Public Use
  Company Number: None

PATIENT
  Age: 82 Year
  Sex: Female
  Weight: 78 kg

DRUGS (1)
  1. SODIUM THIOSULFATE [Suspect]
     Active Substance: SODIUM THIOSULFATE
     Indication: CALCIPHYLAXIS
     Route: 042
     Dates: start: 20150924

REACTIONS (4)
  - Nausea [None]
  - Infusion related reaction [None]
  - Vomiting [None]
  - Bradycardia [None]

NARRATIVE: CASE EVENT DATE: 20150924
